FAERS Safety Report 8371567-6 (Version None)
Quarter: 2012Q2

REPORT INFORMATION
  Report Type: 
  Country: None (occurrence: None)
  Receive Date: 20120518
  Receipt Date: 20120511
  Transmission Date: 20120825
  Serious: Yes (Other)
  Sender: FDA-Public Use
  Company Number: US-ABBOTT-12P-163-0934894-00

PATIENT
  Age: 61 Year
  Sex: Female

DRUGS (6)
  1. HUMIRA [Suspect]
     Indication: PSORIASIS
     Dates: start: 20090101, end: 20101201
  2. UNKNOWN MEDICATION [Concomitant]
     Indication: HYPERTENSION
  3. TOPICAL MEDICATIONS [Concomitant]
     Indication: PSORIASIS
  4. STELARA [Concomitant]
     Indication: PRODUCT USED FOR UNKNOWN INDICATION
     Dosage: TOOK 2 DOSES
     Dates: start: 20120101
  5. UNKNOWN MEDICATION [Concomitant]
     Indication: BLOOD CHOLESTEROL
  6. UNKNOWN MEDICATION [Concomitant]
     Indication: DEPRESSION

REACTIONS (3)
  - MENISCUS LESION [None]
  - PERICARDITIS [None]
  - PLEURISY [None]
